FAERS Safety Report 17210088 (Version 1)
Quarter: 2019Q4

REPORT INFORMATION
  Report Type: Spontaneous
  Country: US (occurrence: US)
  Receive Date: 20191227
  Receipt Date: 20191227
  Transmission Date: 20200122
  Serious: No
  Sender: FDA-Public Use
  Company Number: US-SHIRE-US201945225

PATIENT
  Sex: Male

DRUGS (2)
  1. TAKHZYRO [Suspect]
     Active Substance: LANADELUMAB-FLYO
     Indication: PRODUCT USED FOR UNKNOWN INDICATION
     Dosage: 300 MG/2ML, 1X/2WKS
     Route: 058
     Dates: start: 20181026
  2. FIRAZYR [Suspect]
     Active Substance: ICATIBANT ACETATE
     Indication: PRODUCT USED FOR UNKNOWN INDICATION
     Dosage: 300 MG/3ML, AS REQ^DS
     Route: 058
     Dates: start: 20120917

REACTIONS (2)
  - Injection site urticaria [Recovered/Resolved]
  - Injection site rash [Recovered/Resolved]
